FAERS Safety Report 12717833 (Version 1)
Quarter: 2016Q3

REPORT INFORMATION
  Report Type: Spontaneous
  Country: US (occurrence: US)
  Receive Date: 20160906
  Receipt Date: 20160906
  Transmission Date: 20161109
  Serious: No
  Sender: FDA-Public Use
  Company Number: US-AMNEAL PHARMACEUTICALS-2015AMN00206

PATIENT
  Age: 63 Year
  Sex: Male

DRUGS (8)
  1. AMBIEN [Concomitant]
     Active Substance: ZOLPIDEM TARTRATE
  2. FLECAINIDE ACETATE. [Suspect]
     Active Substance: FLECAINIDE ACETATE
  3. DIGOXIN. [Suspect]
     Active Substance: DIGOXIN
  4. ATENOLOL. [Concomitant]
     Active Substance: ATENOLOL
  5. GABAPENTIN. [Concomitant]
     Active Substance: GABAPENTIN
  6. AMITRIPTYLINE [Concomitant]
     Active Substance: AMITRIPTYLINE
  7. WARFARIN [Concomitant]
     Active Substance: WARFARIN
  8. MYRBETRIQ [Suspect]
     Active Substance: MIRABEGRON

REACTIONS (2)
  - Joint swelling [Unknown]
  - Drug interaction [Unknown]
